FAERS Safety Report 7791756-9 (Version None)
Quarter: 2011Q4

REPORT INFORMATION
  Report Type: 
  Country: None (occurrence: None)
  Receive Date: 20111003
  Receipt Date: 20110927
  Transmission Date: 20120403
  Serious: Yes (Other)
  Sender: FDA-Public Use
  Company Number: US-PFIZER INC-2011230745

PATIENT
  Age: 55 Year
  Sex: Female
  Weight: 58.957 kg

DRUGS (3)
  1. VITAMIN TAB [Concomitant]
     Dosage: UNK
  2. IBUPROFEN (ADVIL) [Suspect]
     Indication: HEADACHE
     Dosage: UNK
     Route: 048
  3. SUDAFED 12 HOUR [Concomitant]
     Indication: NASAL CONGESTION
     Dosage: UNK

REACTIONS (2)
  - RASH GENERALISED [None]
  - ERYTHEMA [None]
